FAERS Safety Report 6766129-8 (Version None)
Quarter: 2010Q2

REPORT INFORMATION
  Report Type: 
  Country: None (occurrence: None)
  Receive Date: 20100611
  Receipt Date: 20100602
  Transmission Date: 20101027
  Serious: Yes (Other)
  Sender: FDA-Public Use
  Company Number: CA-JNJFOC-20100601684

PATIENT
  Sex: Female
  Weight: 52 kg

DRUGS (7)
  1. REMICADE [Suspect]
     Indication: RHEUMATOID ARTHRITIS
     Route: 042
  2. REMICADE [Suspect]
     Dosage: 4 DOSE
     Route: 042
  3. REMICADE [Suspect]
     Indication: CROHN'S DISEASE
     Dosage: 4 DOSE
     Route: 042
  4. REMICADE [Suspect]
     Route: 042
  5. METHOTREXATE [Concomitant]
  6. CALCIUM CARBONATE [Concomitant]
  7. VITAMIN B-12 [Concomitant]
     Route: 050

REACTIONS (5)
  - BLOOD PRESSURE INCREASED [None]
  - HEART RATE INCREASED [None]
  - INFUSION RELATED REACTION [None]
  - MUSCLE SPASMS [None]
  - NAUSEA [None]
